FAERS Safety Report 4661154-5 (Version None)
Quarter: 2005Q2

REPORT INFORMATION
  Report Type: 
  Country: None (occurrence: None)
  Receive Date: 20050427
  Receipt Date: 20050309
  Transmission Date: 20051028
  Serious: Yes (Other)
  Sender: FDA-Public Use
  Company Number: 212588

PATIENT
  Age: 52 Year
  Sex: Male
  Weight: 122.4 kg

DRUGS (9)
  1. XOLAIR [Suspect]
     Indication: ASTHMA
  2. ADVAIR (FLUTICASONE PROPIONATE, SALMETEROL XINAFOATE) [Concomitant]
  3. ASTELIN [Concomitant]
  4. RHINOCORT [Concomitant]
  5. NORVASC [Concomitant]
  6. COZAAR [Concomitant]
  7. BABY ASPIRIN (ASA) (ASPIRIN) [Concomitant]
  8. PRILOSEC [Concomitant]
  9. IBUPROFEN [Concomitant]

REACTIONS (1)
  - ANGIONEUROTIC OEDEMA [None]
